FAERS Safety Report 10363429 (Version 1)
Quarter: 2014Q1

REPORT INFORMATION
  Report Type: Spontaneous
  Country: US (occurrence: None)
  Receive Date: 20140306
  Receipt Date: 20140306
  Transmission Date: 20141002
  Serious: Yes (Hospitalization, Other)
  Sender: FDA-Public Use
  Company Number: 163-21880-13061508

PATIENT
  Age: 75 Year
  Sex: Male
  Weight: 75.39 kg

DRUGS (20)
  1. REVLIMID [Suspect]
     Indication: PLASMA CELL MYELOMA
     Dosage: 25 MG, 21 IN 28 D, PO
     Route: 048
     Dates: start: 20130319, end: 20130518
  2. BORTEZOMIB (BORTEZOMIB) [Concomitant]
  3. DEXAMETHASONE (DEXAMETHASONE) [Concomitant]
  4. CYTOXAN (CYCLOPHOSPHAMIDE) [Concomitant]
  5. ONDANSETRON HCL (ONDANSETRON HYDROCHLORIDE) [Concomitant]
  6. VALACYCLOVIR (VALACICLOVIR HYDROCHLORIDE) [Concomitant]
  7. AMBIEN (ZOLPIDEM TARTRATE) [Concomitant]
  8. CARDIA XT (AJMALINE) [Concomitant]
  9. COMBIVENT INHALER (COMBIVENT) (INHALANT) [Concomitant]
  10. HYDRALAZINE HCL (HYDRALAZINE HYDROCHLORIDE) [Concomitant]
  11. HYDROCHLOROTHIAZIDE (HYDROCHLOROTHIAZIDE) [Concomitant]
  12. LIPITOR (ATORVASTATIN) [Concomitant]
  13. LISINOPRIL (LISINOPRIL) [Concomitant]
  14. METOPROLOL (METROPROLOL) [Concomitant]
  15. XARELTO (RIVAROXABAN) [Concomitant]
  16. ANTIBIOTICS (ANTIBIOTICS) [Concomitant]
  17. AUGMENTIN [Concomitant]
  18. CARTIA (ACETYLSALICYLIC ACID) (CAPSULES) [Concomitant]
  19. PREDNISONE (PREDNISONE) (TABLETS) [Concomitant]
  20. ZOLEDRONIC ACID (ZOLEDRONIC ACID) [Concomitant]

REACTIONS (2)
  - Pneumonia bacterial [None]
  - Atrial fibrillation [None]
